FAERS Safety Report 11585026 (Version 1)
Quarter: 2015Q4

REPORT INFORMATION
  Report Type: Report from Study
  Country: FR (occurrence: FR)
  Receive Date: 20151001
  Receipt Date: 20151001
  Transmission Date: 20160304
  Serious: Yes (Life-Threatening, Other)
  Sender: FDA-Public Use
  Company Number: FR-PFIZER INC-2015316689

PATIENT
  Age: 41 Year
  Sex: Female
  Weight: 60 kg

DRUGS (7)
  1. OXYCONTIN [Concomitant]
     Active Substance: OXYCODONE HYDROCHLORIDE
  2. PIASCLEDINE [Concomitant]
     Active Substance: AVOCADO OIL\SOYBEAN OIL
  3. SERTRALINE [Concomitant]
     Active Substance: SERTRALINE HYDROCHLORIDE
  4. NEURONTIN [Suspect]
     Active Substance: GABAPENTIN
  5. NEXEN [Concomitant]
     Active Substance: NIMESULIDE
  6. RIVOTRIL [Concomitant]
     Active Substance: CLONAZEPAM
  7. AERIUS [Concomitant]
     Active Substance: DESLORATADINE

REACTIONS (2)
  - Angioedema [Unknown]
  - Amnesia [Unknown]

NARRATIVE: CASE EVENT DATE: 20000101
